FAERS Safety Report 8617692-3 (Version None)
Quarter: 2012Q3

REPORT INFORMATION
  Report Type: 
  Country: None (occurrence: None)
  Receive Date: 20120824
  Receipt Date: 20120131
  Transmission Date: 20120928
  Serious: No
  Sender: FDA-Public Use
  Company Number: US-ASTRAZENECA-2011SE78207

PATIENT
  Sex: Male

DRUGS (1)
  1. SYMBICORT [Suspect]
     Indication: DYSPNOEA
     Dosage: 160/4.5 MCG 1 PUFF BID
     Route: 055
     Dates: start: 20090101

REACTIONS (4)
  - GAIT DISTURBANCE [None]
  - OFF LABEL USE [None]
  - PULMONARY CONGESTION [None]
  - DYSPNOEA [None]
